FAERS Safety Report 13495110 (Version 1)
Quarter: 2017Q2

REPORT INFORMATION
  Report Type: Spontaneous
  Country: US (occurrence: US)
  Receive Date: 20170428
  Receipt Date: 20170428
  Transmission Date: 20170830
  Serious: No
  Sender: FDA-Public Use
  Company Number: US-BIOGEN-2017BI00391906

PATIENT
  Sex: Female

DRUGS (1)
  1. PLEGRIDY [Suspect]
     Active Substance: PEGINTERFERON BETA-1A
     Indication: MULTIPLE SCLEROSIS
     Route: 065
     Dates: start: 20170414

REACTIONS (6)
  - Eye pain [Unknown]
  - Cough [Unknown]
  - Chills [Unknown]
  - Middle ear effusion [Unknown]
  - Viral upper respiratory tract infection [Unknown]
  - Headache [Unknown]
